FAERS Safety Report 5239334-X (Version None)
Quarter: 2007Q1

REPORT INFORMATION
  Report Type: 
  Country: None (occurrence: None)
  Receive Date: 20070216
  Receipt Date: 20070206
  Transmission Date: 20070707
  Serious: Yes (Other)
  Sender: FDA-Public Use
  Company Number: CO-BRISTOL-MYERS SQUIBB COMPANY-13678602

PATIENT

DRUGS (1)
  1. WARFARIN SODIUM [Suspect]

REACTIONS (1)
  - EMBOLISM [None]
